FAERS Safety Report 8113097-2 (Version None)
Quarter: 2012Q1

REPORT INFORMATION
  Report Type: 
  Country: None (occurrence: None)
  Receive Date: 20120203
  Receipt Date: 20120124
  Transmission Date: 20120608
  Serious: Yes (Hospitalization, Other)
  Sender: FDA-Public Use
  Company Number: US-ABBOTT-12P-163-0898586-00

PATIENT
  Sex: Male

DRUGS (16)
  1. PANTOPRAZOLE [Concomitant]
     Indication: PRODUCT USED FOR UNKNOWN INDICATION
     Route: 048
  2. METFORMIN HCL [Concomitant]
     Dates: start: 20110101
  3. DESPIRIMINE [Suspect]
     Indication: DEPRESSION
     Dates: end: 20110101
  4. BENAZEPRIL HYDROCHLORIDE [Concomitant]
     Indication: BLOOD PRESSURE ABNORMAL
     Dosage: 1 EVERY MORNING
  5. MULTI-VITAMIN [Concomitant]
     Indication: PRODUCT USED FOR UNKNOWN INDICATION
  6. INSULIN [Suspect]
     Indication: DIABETES MELLITUS
     Dates: start: 20110101, end: 20110101
  7. BISOPROLOL FUMARATE AND HYDROCHLOROTHIAZIDE [Concomitant]
     Indication: BLOOD PRESSURE ABNORMAL
     Dosage: 10/6.25MG DAILY
     Route: 048
  8. BISOPROLOL FUMARATE AND HYDROCHLOROTHIAZIDE [Concomitant]
     Indication: FLUID RETENTION
  9. DOXAZOSIN [Concomitant]
     Indication: URINE FLOW DECREASED
     Dosage: 4MG 1 DAILY
     Route: 048
  10. HUMIRA [Suspect]
     Indication: RHEUMATOID ARTHRITIS
     Dates: end: 20111101
  11. HUMIRA [Suspect]
     Dates: start: 20120101
  12. CARBIDOPA AND LEVODOPA [Concomitant]
     Indication: TREMOR
     Dosage: 25/100MG 1 THREE TIMES A DAY
     Route: 048
  13. SIMVASTATIN [Concomitant]
     Indication: PRODUCT USED FOR UNKNOWN INDICATION
     Route: 048
  14. MIRALAX [Concomitant]
     Indication: PRODUCT USED FOR UNKNOWN INDICATION
     Dosage: 8OZ WATER ON TUESDAY, THURSDAY AND SATURDAY
  15. XANAX [Concomitant]
     Indication: PRODUCT USED FOR UNKNOWN INDICATION
  16. METFORMIN HCL [Concomitant]
     Indication: PRODUCT USED FOR UNKNOWN INDICATION
     Dosage: DAILY
     Dates: end: 20110101

REACTIONS (20)
  - TRANSIENT ISCHAEMIC ATTACK [None]
  - PAIN [None]
  - ANXIETY [None]
  - BLOOD GLUCOSE DECREASED [None]
  - PSYCHOTIC DISORDER [None]
  - INJECTION SITE PAIN [None]
  - DIZZINESS [None]
  - WALKING AID USER [None]
  - BLOOD GLUCOSE FLUCTUATION [None]
  - INCOHERENT [None]
  - NECK PAIN [None]
  - HEMIPARESIS [None]
  - OEDEMA PERIPHERAL [None]
  - CEREBROVASCULAR ACCIDENT [None]
  - LOSS OF CONSCIOUSNESS [None]
  - URINARY TRACT INFECTION [None]
  - DEVICE MALFUNCTION [None]
  - DEPRESSION [None]
  - MEMORY IMPAIRMENT [None]
  - MUSCULOSKELETAL PAIN [None]
